FAERS Safety Report 5524008-8 (Version None)
Quarter: 2007Q4

REPORT INFORMATION
  Report Type: 
  Country: None (occurrence: None)
  Receive Date: 20071121
  Receipt Date: 20071120
  Transmission Date: 20080405
  Serious: Yes (Other)
  Sender: FDA-Public Use
  Company Number: AU-BOEHRINGER INGELHEIM PHARMACEUTICALS, INC.-2006-BP-03465AU

PATIENT
  Sex: Male
  Weight: 72 kg

DRUGS (2)
  1. MICARDIS [Suspect]
     Indication: HYPERTENSION
     Route: 048
     Dates: start: 20050908, end: 20060315
  2. ZOCOR [Suspect]
     Indication: HYPERCHOLESTEROLAEMIA

REACTIONS (3)
  - MUSCLE TWITCHING [None]
  - PARAESTHESIA [None]
  - TREMOR [None]
